FAERS Safety Report 18080374 (Version 1)
Quarter: 2020Q3

REPORT INFORMATION
  Report Type: Other
  Country: GB (occurrence: GB)
  Receive Date: 20200728
  Receipt Date: 20200728
  Transmission Date: 20201103
  Serious: Yes (Disabling, Other)
  Sender: FDA-Public Use
  Company Number: GB-MACLEODS PHARMACEUTICALS US LTD-MAC2020027439

PATIENT

DRUGS (1)
  1. LEVOFLOXACIN TABLET 500 MG [Suspect]
     Active Substance: LEVOFLOXACIN
     Indication: PNEUMONIA BACTERIAL
     Dosage: 500 MILLIGRAM
     Route: 048
     Dates: start: 20171224, end: 20171228

REACTIONS (4)
  - Balance disorder [Not Recovered/Not Resolved]
  - Paraesthesia [Not Recovered/Not Resolved]
  - Pain [Unknown]
  - Anxiety [Not Recovered/Not Resolved]

NARRATIVE: CASE EVENT DATE: 20180302
